FAERS Safety Report 4327477-4 (Version None)
Quarter: 2004Q1

REPORT INFORMATION
  Report Type: 
  Country: None (occurrence: None)
  Receive Date: 20040330
  Receipt Date: 20040330
  Transmission Date: 20041129
  Serious: No
  Sender: FDA-Public Use
  Company Number: None

PATIENT
  Age: 14 Year
  Sex: Female
  Weight: 54.4316 kg

DRUGS (3)
  1. INAPSINE [Suspect]
     Indication: NAUSEA
     Dosage: 2.5 MG IV X 1
     Route: 042
  2. INAPSINE [Suspect]
     Indication: VOMITING
     Dosage: 2.5 MG IV X 1
     Route: 042
  3. BENADRYL [Concomitant]

REACTIONS (2)
  - DYSTONIA [None]
  - MUSCLE TIGHTNESS [None]
